FAERS Safety Report 24556224 (Version 1)
Quarter: 2024Q4

REPORT INFORMATION
  Report Type: Report from Study
  Country: AT (occurrence: AT)
  Receive Date: 20241028
  Receipt Date: 20241028
  Transmission Date: 20250114
  Serious: Yes (Other)
  Sender: MYLAN
  Company Number: AT-MYLANLABS-2024M1096704

PATIENT
  Age: 67 Year
  Sex: Male

DRUGS (8)
  1. BISOPROLOL [Suspect]
     Active Substance: BISOPROLOL\BISOPROLOL FUMARATE
     Indication: Hemiplegic migraine
     Dosage: UNK
     Route: 065
  2. BISOPROLOL [Suspect]
     Active Substance: BISOPROLOL\BISOPROLOL FUMARATE
     Indication: Gene mutation
  3. CANDESARTAN [Suspect]
     Active Substance: CANDESARTAN
     Indication: Hemiplegic migraine
     Dosage: UNK
     Route: 065
  4. CANDESARTAN [Suspect]
     Active Substance: CANDESARTAN
     Indication: Gene mutation
  5. ACETAZOLAMIDE [Suspect]
     Active Substance: ACETAZOLAMIDE
     Indication: Hemiplegic migraine
     Dosage: UNK
     Route: 065
  6. ACETAZOLAMIDE [Suspect]
     Active Substance: ACETAZOLAMIDE
     Indication: Gene mutation
  7. FLUNARIZINE [Suspect]
     Active Substance: FLUNARIZINE
     Indication: Hemiplegic migraine
     Dosage: UNK
     Route: 065
  8. FLUNARIZINE [Suspect]
     Active Substance: FLUNARIZINE
     Indication: Gene mutation

REACTIONS (1)
  - Drug ineffective [Unknown]
